FAERS Safety Report 12067114 (Version 5)
Quarter: 2016Q2

REPORT INFORMATION
  Report Type: Spontaneous
  Country: US (occurrence: US)
  Receive Date: 20160210
  Receipt Date: 20160519
  Transmission Date: 20160815
  Serious: No
  Sender: FDA-Public Use
  Company Number: US-JNJFOC-20151216152

PATIENT
  Age: 61 Year
  Sex: Female
  Weight: 66.23 kg

DRUGS (6)
  1. ACYCLOVIR. [Concomitant]
     Active Substance: ACYCLOVIR
  2. XANAX [Concomitant]
     Active Substance: ALPRAZOLAM
     Indication: ANXIETY
  3. ATENOLOL. [Concomitant]
     Active Substance: ATENOLOL
     Indication: MITRAL VALVE PROLAPSE
  4. DARZALEX [Suspect]
     Active Substance: DARATUMUMAB
     Indication: PLASMA CELL MYELOMA
     Route: 042
     Dates: start: 20151217
  5. ANTIEMETICS AND ANTINAUSEANTS [Suspect]
     Active Substance: UNSPECIFIED INGREDIENT
     Indication: NAUSEA
     Dosage: AS NEEDED
  6. WELLBUTRIN [Concomitant]
     Active Substance: BUPROPION HYDROCHLORIDE
     Indication: DEPRESSION
     Dates: start: 2006

REACTIONS (9)
  - Fatigue [Unknown]
  - Infusion related reaction [Recovered/Resolved]
  - Nausea [Not Recovered/Not Resolved]
  - Cough [Recovered/Resolved]
  - Rash [Recovered/Resolved]
  - Chills [Unknown]
  - Pruritus [Recovered/Resolved]
  - Headache [Unknown]
  - Crying [Recovered/Resolved]

NARRATIVE: CASE EVENT DATE: 201512
